FAERS Safety Report 5547367-9 (Version None)
Quarter: 2007Q4

REPORT INFORMATION
  Report Type: 
  Country: None (occurrence: None)
  Receive Date: 20071211
  Receipt Date: 20070222
  Transmission Date: 20080405
  Serious: No
  Sender: FDA-Public Use
  Company Number: US-AMGEN-KDL207326

PATIENT
  Sex: Female

DRUGS (4)
  1. ENBREL [Suspect]
     Indication: PSORIATIC ARTHROPATHY
     Route: 058
     Dates: start: 20041020
  2. ENBREL [Suspect]
     Indication: PSORIASIS
  3. XANAX [Concomitant]
  4. PREMARIN [Concomitant]

REACTIONS (5)
  - INJECTION SITE IRRITATION [None]
  - INJECTION SITE PAIN [None]
  - STOMATITIS [None]
  - TINNITUS [None]
  - TONGUE COATED [None]
